FAERS Safety Report 8269057-4 (Version None)
Quarter: 2012Q2

REPORT INFORMATION
  Report Type: 
  Country: None (occurrence: None)
  Receive Date: 20120409
  Receipt Date: 20120404
  Transmission Date: 20120825
  Serious: Yes (Hospitalization)
  Sender: FDA-Public Use
  Company Number: DE-PFIZER INC-2012041990

PATIENT
  Age: 40 Year
  Sex: Female
  Weight: 63.9 kg

DRUGS (8)
  1. ACICLOVIR [Concomitant]
     Indication: INFECTION PROPHYLAXIS
     Dosage: 200 MG, 1-1-1-1
     Route: 048
     Dates: start: 20110902
  2. CYTARABINE [Suspect]
     Indication: ACUTE MYELOID LEUKAEMIA
     Dosage: 185 MG, DAILY DOSE
     Dates: start: 20111006, end: 20111012
  3. GEMTUZUMAB OZOGAMICIN [Suspect]
     Indication: ACUTE MYELOID LEUKAEMIA
     Dosage: 5.55 MG, DAILY DOSE
     Dates: start: 20111006, end: 20111006
  4. ETOPOSIDE [Suspect]
     Indication: ACUTE MYELOID LEUKAEMIA
     Dosage: 185 MG, DAILY DOSE
     Dates: start: 20111006, end: 20111008
  5. VFEND [Concomitant]
     Indication: ANTIFUNGAL PROPHYLAXIS
     Dosage: 200 MG, 1-1-1
     Route: 048
     Dates: start: 20111010
  6. COTRIM DS [Concomitant]
     Indication: INFECTION PROPHYLAXIS
     Dosage: 960 MG, MONDAY, WEDNESDAY, FRIDAY 0-1-0
     Route: 048
     Dates: start: 20110902
  7. IDARUBICIN HCL [Suspect]
     Indication: ACUTE MYELOID LEUKAEMIA
     Dosage: 22.22 MG, DAILY DOSE
     Dates: start: 20111006, end: 20111008
  8. ATRACURIUM BESYLATE [Suspect]
     Indication: ACUTE MYELOID LEUKAEMIA
     Dosage: 90MG/30MG DAILY DOSE
     Dates: start: 20111011, end: 20111026

REACTIONS (1)
  - PANCYTOPENIA [None]
